FAERS Safety Report 7392238-9 (Version None)
Quarter: 2011Q2

REPORT INFORMATION
  Report Type: 
  Country: None (occurrence: None)
  Receive Date: 20110404
  Receipt Date: 20110322
  Transmission Date: 20111010
  Serious: Yes (Other)
  Sender: FDA-Public Use
  Company Number: US-MERCK-1103USA02948

PATIENT
  Age: 49 Year
  Sex: Female

DRUGS (1)
  1. IVOMEC POUR ON [Suspect]
     Indication: DRUG ADMINISTRATION ERROR
     Route: 061
     Dates: start: 20110201, end: 20110201

REACTIONS (6)
  - ACCIDENTAL EXPOSURE [None]
  - RETCHING [None]
  - MASS [None]
  - GAIT DISTURBANCE [None]
  - FEELING ABNORMAL [None]
  - HYPOAESTHESIA [None]
